FAERS Safety Report 7558090-3 (Version None)
Quarter: 2011Q2

REPORT INFORMATION
  Report Type: 
  Country: None (occurrence: None)
  Receive Date: 20110620
  Receipt Date: 20110610
  Transmission Date: 20111010
  Serious: Yes (Other)
  Sender: FDA-Public Use
  Company Number: US-ASTRAZENECA-2011SE15069

PATIENT
  Age: 52 Year
  Sex: Female

DRUGS (6)
  1. MELATONIN [Concomitant]
  2. NEXIUM [Suspect]
     Indication: GASTROOESOPHAGEAL REFLUX DISEASE
     Dosage: DAILY
     Route: 048
     Dates: start: 20100101
  3. KLONOPIN [Concomitant]
     Indication: SLEEP DISORDER
  4. THYROID MEDICATION [Concomitant]
  5. NEXIUM [Suspect]
     Indication: BARRETT'S OESOPHAGUS
     Dosage: DAILY
     Route: 048
     Dates: start: 20100101
  6. BENADRYL [Concomitant]

REACTIONS (5)
  - HAEMORRHAGE [None]
  - ABDOMINAL PAIN UPPER [None]
  - COELIAC DISEASE [None]
  - DIARRHOEA [None]
  - COLITIS COLLAGENOUS [None]
